FAERS Safety Report 8368953-7 (Version None)
Quarter: 2012Q2

REPORT INFORMATION
  Report Type: 
  Country: None (occurrence: None)
  Receive Date: 20120516
  Receipt Date: 20120502
  Transmission Date: 20120825
  Serious: Yes (Death)
  Sender: FDA-Public Use
  Company Number: 1275355

PATIENT
  Age: 34 Year
  Sex: Female
  Weight: 74 kg

DRUGS (8)
  1. DILTIAZEM [Concomitant]
  2. THYROID HORMONES [Concomitant]
  3. TORADOL [Concomitant]
  4. CORTICOSTEROIDS [Concomitant]
  5. HYZAAR [Concomitant]
  6. FENTANYL CITRATE [Suspect]
     Indication: PRODUCT USED FOR UNKNOWN INDICATION
     Dosage: 100.0 MCG, NOT REPORTED, UNKNOWN
  7. OXYCODONE HCL [Suspect]
     Indication: PRODUCT USED FOR UNKNOWN INDICATION
     Dosage: 5.0 MG, AS REQUIRED, UNKNOWN
  8. ACYCLOVIR [Concomitant]

REACTIONS (1)
  - MULTIPLE DRUG OVERDOSE [None]
